FAERS Safety Report 10187174 (Version 2)
Quarter: 2014Q2

REPORT INFORMATION
  Report Type: Spontaneous
  Country: IT (occurrence: None)
  Receive Date: 20140520
  Receipt Date: 20140603
  Transmission Date: 20141212
  Serious: Yes (Hospitalization)
  Sender: FDA-Public Use
  Company Number: 2014STPI000213

PATIENT
  Age: 39 Year
  Sex: Female
  Weight: 83 kg

DRUGS (7)
  1. MATULANE [Suspect]
     Indication: OLIGODENDROGLIOMA
     Route: 048
     Dates: start: 201109, end: 20120418
  2. VINCRISTINE (VINCRISTINE SULFATE) [Suspect]
     Indication: OLIGODENDROGLIOMA
     Route: 042
     Dates: start: 201109, end: 20120510
  3. TEGRETOL [Suspect]
     Indication: SIMPLE PARTIAL SEIZURES
     Route: 048
     Dates: start: 20110411
  4. LOMUSTINE [Suspect]
     Indication: OLIGODENDROGLIOMA
     Dates: start: 201109, end: 20120412
  5. KEPPRA (LEVETIRACETAM) [Concomitant]
  6. INEXIUM (ESOMEPRAZOLE MAGNESIUM) (ESOMEPRAZOLE MAGNESIUM) [Concomitant]
  7. VOGALENE (METOPIMAZINE) [Concomitant]

REACTIONS (6)
  - Hyponatraemia [None]
  - Oedema peripheral [None]
  - Oedema peripheral [None]
  - Oedema [None]
  - Gait disturbance [None]
  - Activities of daily living impaired [None]
